FAERS Safety Report 23554020 (Version 1)
Quarter: 2024Q1

REPORT INFORMATION
  Report Type: Spontaneous
  Country: JP (occurrence: JP)
  Receive Date: 20240222
  Receipt Date: 20240222
  Transmission Date: 20240410
  Serious: Yes (Other)
  Sender: FDA-Public Use
  Company Number: JP-PFIZER INC-PV202400022415

PATIENT
  Age: 84 Year
  Sex: Male
  Weight: 50 kg

DRUGS (9)
  1. PAXLOVID [Suspect]
     Active Substance: NIRMATRELVIR\RITONAVIR
     Indication: COVID-19
     Dosage: [NIRMATRELVIR 300 MG]/[RITONAVIR 100 MG]; 2X/DAY
     Route: 048
     Dates: start: 20240204, end: 20240207
  2. EBASTINE NP [Concomitant]
     Dosage: UNK
     Route: 048
     Dates: start: 20231101
  3. DABIGATRAN ETEXILATE MESYLATE [Concomitant]
     Active Substance: DABIGATRAN ETEXILATE MESYLATE
     Dosage: UNK
     Route: 048
     Dates: start: 20240203
  4. LOXOPROFEN SODIUM [Concomitant]
     Active Substance: LOXOPROFEN SODIUM
     Dosage: 1 DF, AS NEEDED
     Route: 048
     Dates: start: 20240204, end: 20240204
  5. CALONAL [Concomitant]
     Active Substance: ACETAMINOPHEN
     Dosage: 1 TABLET, 2 TIMES, AS NEEDED
     Route: 048
     Dates: start: 20240204, end: 20240205
  6. AMOXICILLIN [Concomitant]
     Active Substance: AMOXICILLIN
     Dosage: 3 DF, 3X/DAY, EVERY AFTER MEAL
     Route: 048
     Dates: start: 20240206
  7. BISACODYL [Concomitant]
     Active Substance: BISACODYL
     Dosage: 1 DF, AS NEEDED, ONCE A DAY
     Route: 054
     Dates: start: 20240207, end: 20240207
  8. DEXTROSE\SODIUM CHLORIDE\SODIUM LACTATE [Concomitant]
     Active Substance: DEXTROSE\SODIUM CHLORIDE\SODIUM LACTATE
     Dosage: 500 ML
     Route: 042
     Dates: start: 20240206, end: 20240213
  9. DAYVIGO [Concomitant]
     Active Substance: LEMBOREXANT
     Dosage: 0.5 DF, 1X/DAY, BEFORE SLEEP
     Route: 048
     Dates: start: 20240209

REACTIONS (4)
  - Blood creatine phosphokinase increased [Recovered/Resolved]
  - Transaminases increased [Recovered/Resolved]
  - Blood lactate dehydrogenase increased [Unknown]
  - C-reactive protein increased [Recovered/Resolved]

NARRATIVE: CASE EVENT DATE: 20240204
